FAERS Safety Report 5711896-5 (Version None)
Quarter: 2008Q2

REPORT INFORMATION
  Report Type: 
  Country: None (occurrence: None)
  Receive Date: 20080421
  Receipt Date: 20080416
  Transmission Date: 20081010
  Serious: Yes (Other)
  Sender: FDA-Public Use
  Company Number: JP-BOEHRINGER INGELHEIM GMBH, GERMANY-2007-BP-19396NB

PATIENT
  Age: 86 Year
  Sex: Female

DRUGS (14)
  1. PERSANTIN-L CAPSULES [Suspect]
     Route: 048
     Dates: start: 20070710
  2. DOPACOL [Concomitant]
     Route: 048
  3. GLUCONSAN K [Concomitant]
     Route: 048
  4. PERMAX [Concomitant]
     Route: 048
  5. PAKISONAL [Concomitant]
     Route: 048
  6. AMAZOLON [Concomitant]
     Route: 048
  7. CABERGOLINE [Concomitant]
     Route: 048
  8. RADEN [Concomitant]
     Route: 048
  9. NEUCHLONIC (NITRAZEPAM) [Concomitant]
     Route: 048
  10. LASIX [Concomitant]
     Route: 048
  11. APORASNON (SPIRONOLACTONE) [Concomitant]
     Route: 048
  12. OMEPRAL (OMEPRAZOLE) [Concomitant]
     Route: 042
     Dates: start: 20070810
  13. SOL-MELCORT [Concomitant]
     Route: 042
     Dates: start: 20070801
  14. CEFOTAX [Concomitant]
     Route: 042
     Dates: start: 20070731, end: 20070807

REACTIONS (1)
  - INTERSTITIAL LUNG DISEASE [None]
